FAERS Safety Report 15352218 (Version 1)
Quarter: 2018Q4

REPORT INFORMATION
  Report Type: Spontaneous
  Country: US (occurrence: US)
  Receive Date: 20180905
  Receipt Date: 20180905
  Transmission Date: 20190204
  Serious: No
  Sender: FDA-Public Use
  Company Number: US-AKRON, INC.-2054630

PATIENT
  Sex: Female

DRUGS (1)
  1. ERYTHRIMYCIN OPHTHALMIC OINTMENT [Suspect]
     Active Substance: ERYTHROMYCIN
     Route: 047

REACTIONS (1)
  - Headache [Unknown]
